FAERS Safety Report 18080850 (Version 1)
Quarter: 2020Q3

REPORT INFORMATION
  Report Type: Spontaneous
  Country: US (occurrence: US)
  Receive Date: 20200728
  Receipt Date: 20200728
  Transmission Date: 20201103
  Serious: No
  Sender: FDA-Public Use
  Company Number: US-SA-2020SA187400

PATIENT

DRUGS (3)
  1. GLIBENCLAMIDE [Suspect]
     Active Substance: GLYBURIDE
     Indication: DIABETES MELLITUS
     Dosage: UNK
     Dates: start: 2019
  2. LISINOPRIL. [Suspect]
     Active Substance: LISINOPRIL
     Dosage: UNK
  3. LOVASTATIN. [Suspect]
     Active Substance: LOVASTATIN

REACTIONS (4)
  - Night sweats [Unknown]
  - Vision blurred [Unknown]
  - Hypotension [Unknown]
  - Blood glucose decreased [Unknown]
